FAERS Safety Report 6007684-5 (Version None)
Quarter: 2008Q4

REPORT INFORMATION
  Report Type: 
  Country: None (occurrence: None)
  Receive Date: 20081217
  Receipt Date: 20080403
  Transmission Date: 20090506
  Serious: No
  Sender: FDA-Public Use
  Company Number: US-ASTRAZENECA-2008UW06754

PATIENT
  Age: 49 Year
  Sex: Male
  Weight: 81.6 kg

DRUGS (3)
  1. CRESTOR [Suspect]
     Indication: BLOOD CHOLESTEROL
     Dosage: 10 MG
     Route: 048
     Dates: start: 20080305
  2. ACTOPLUS MET [Concomitant]
  3. LISINOPRIL [Concomitant]
     Dosage: 10 MG
     Route: 048
     Dates: start: 20080305

REACTIONS (2)
  - ABDOMINAL DISCOMFORT [None]
  - FLATULENCE [None]
